FAERS Safety Report 8284668-8 (Version None)
Quarter: 2012Q2

REPORT INFORMATION
  Report Type: 
  Country: None (occurrence: None)
  Receive Date: 20120413
  Receipt Date: 20120406
  Transmission Date: 20120825
  Serious: Yes (Life-Threatening, Hospitalization, Disabling, Other)
  Sender: FDA-Public Use
  Company Number: US-BAYER-2011-068297

PATIENT
  Age: 19 Year
  Sex: Female
  Weight: 58.503 kg

DRUGS (1)
  1. YASMIN [Suspect]
     Indication: CONTRACEPTION
     Dosage: UNK
     Dates: start: 20030101, end: 20051101

REACTIONS (7)
  - EMOTIONAL DISTRESS [None]
  - ANXIETY [None]
  - INJURY [None]
  - CHOLECYSTITIS CHRONIC [None]
  - ANHEDONIA [None]
  - GALLBLADDER NON-FUNCTIONING [None]
  - PAIN [None]
